FAERS Safety Report 4847668-3 (Version None)
Quarter: 2005Q4

REPORT INFORMATION
  Report Type: 
  Country: None (occurrence: None)
  Receive Date: 20051205
  Receipt Date: 20051027
  Transmission Date: 20060501
  Serious: Yes (Death)
  Sender: FDA-Public Use
  Company Number: 2005-CZ-01207

PATIENT
  Age: 79 Year
  Sex: Female

DRUGS (13)
  1. TRAMADOL HCL [Suspect]
     Indication: BACK PAIN
     Dosage: 50 MG, 1 IN 1 D, ORAL
     Route: 048
     Dates: start: 20040722, end: 20040725
  2. AMITRIPTYLINE [Suspect]
     Dosage: 100 MG NOCTE,
     Dates: start: 20040712
  3. MORPHINE [Concomitant]
  4. CELECOXIB [Concomitant]
  5. TENORETIC 100 [Concomitant]
  6. SIMVASTATIN [Concomitant]
  7. TEMAZEPAM [Concomitant]
  8. MORPHINE SULFATE [Concomitant]
  9. BACLOFEN [Concomitant]
  10. DI-GESIC [Concomitant]
  11. LEVOTHYROXINE SODIUM [Concomitant]
  12. ASPIRIN [Concomitant]
  13. PLANTAGO OVATA HUSK [Concomitant]

REACTIONS (5)
  - ABNORMAL BEHAVIOUR [None]
  - CONFUSIONAL STATE [None]
  - MYOCARDIAL INFARCTION [None]
  - PNEUMONIA ASPIRATION [None]
  - PO2 DECREASED [None]
